FAERS Safety Report 12471544 (Version 3)
Quarter: 2016Q3

REPORT INFORMATION
  Report Type: Spontaneous
  Country: US (occurrence: US)
  Receive Date: 20160616
  Receipt Date: 20160808
  Transmission Date: 20161109
  Serious: No
  Sender: FDA-Public Use
  Company Number: US-BEH-2015057252

PATIENT
  Sex: Female
  Weight: 76 kg

DRUGS (30)
  1. ANTIBIOTICS [Suspect]
     Active Substance: UNSPECIFIED INGREDIENT
  2. SODIUM CHLORIDE. [Concomitant]
     Active Substance: SODIUM CHLORIDE
  3. PREDNISONE. [Concomitant]
     Active Substance: PREDNISONE
  4. VITAMIN E [Concomitant]
     Active Substance: .ALPHA.-TOCOPHEROL
  5. VITAMIN D3 [Concomitant]
     Active Substance: CHOLECALCIFEROL
  6. ESTRADIOL. [Concomitant]
     Active Substance: ESTRADIOL
  7. HIZENTRA [Suspect]
     Active Substance: HUMAN IMMUNOGLOBULIN G
     Indication: MYASTHENIA GRAVIS
     Route: 058
  8. EPIPEN [Concomitant]
     Active Substance: EPINEPHRINE
  9. MESTINON [Concomitant]
     Active Substance: PYRIDOSTIGMINE BROMIDE
  10. PREVACID [Concomitant]
     Active Substance: LANSOPRAZOLE
  11. SPIRONOLACTONE. [Concomitant]
     Active Substance: SPIRONOLACTONE
  12. VITAMIN C [Concomitant]
     Active Substance: ASCORBIC ACID
  13. NORMAL SALINE [Concomitant]
     Active Substance: SODIUM CHLORIDE
  14. CELEXA [Concomitant]
     Active Substance: CITALOPRAM HYDROBROMIDE
  15. CLONAZEPAM. [Concomitant]
     Active Substance: CLONAZEPAM
  16. CARBAMAZEPINE. [Concomitant]
     Active Substance: CARBAMAZEPINE
  17. HIZENTRA [Suspect]
     Active Substance: HUMAN IMMUNOGLOBULIN G
     Route: 058
  18. HIZENTRA [Suspect]
     Active Substance: HUMAN IMMUNOGLOBULIN G
     Route: 058
  19. LIDOCAINE/PRILOCAINE [Concomitant]
     Active Substance: LIDOCAINE\PRILOCAINE
  20. L-M-X [Concomitant]
  21. SOLU-MEDROL [Concomitant]
     Active Substance: METHYLPREDNISOLONE SODIUM SUCCINATE
  22. FLEXERIL [Concomitant]
     Active Substance: CYCLOBENZAPRINE HYDROCHLORIDE
  23. CALCIUM [Concomitant]
     Active Substance: CALCIUM
  24. ASPIRIN EC [Concomitant]
     Active Substance: ASPIRIN
  25. DIPHENHYDRAMINE. [Concomitant]
     Active Substance: DIPHENHYDRAMINE
  26. TEGRETOL [Concomitant]
     Active Substance: CARBAMAZEPINE
  27. AUGMENTIN [Concomitant]
     Active Substance: AMOXICILLIN\CLAVULANATE POTASSIUM
  28. LUMIGAN [Concomitant]
     Active Substance: BIMATOPROST
  29. ACETAMINOPHEN. [Concomitant]
     Active Substance: ACETAMINOPHEN
  30. AMLODIPINE BESYLATE AND BENAZEPRIL HYDROCHLORIDE [Concomitant]
     Active Substance: AMLODIPINE BESYLATE\BENAZEPRIL HYDROCHLORIDE

REACTIONS (1)
  - Ocular rosacea [Unknown]
